FAERS Safety Report 5014805-X (Version None)
Quarter: 2006Q2

REPORT INFORMATION
  Report Type: 
  Country: None (occurrence: None)
  Receive Date: 20060531
  Receipt Date: 20060517
  Transmission Date: 20061013
  Serious: Yes (Other)
  Sender: FDA-Public Use
  Company Number: PHHO2006AR08114

PATIENT
  Age: 75 Year
  Sex: Female

DRUGS (1)
  1. ZELMAC / HTF 919A [Suspect]
     Indication: CONSTIPATION
     Dosage: 1 TABLET BID
     Route: 048
     Dates: start: 20040101

REACTIONS (4)
  - HEPATIC PAIN [None]
  - HEPATITIS [None]
  - HEPATOCELLULAR DAMAGE [None]
  - VOMITING [None]
